FAERS Safety Report 17167366 (Version 1)
Quarter: 2019Q4

REPORT INFORMATION
  Report Type: Spontaneous
  Country: US (occurrence: US)
  Receive Date: 20191217
  Receipt Date: 20191217
  Transmission Date: 20200122
  Serious: No
  Sender: FDA-Public Use
  Company Number: US-ELI_LILLY_AND_COMPANY-US201911008053

PATIENT
  Age: 74 Year
  Sex: Male

DRUGS (1)
  1. HUMALOG MIX75/25 [Suspect]
     Active Substance: INSULIN LISPRO
     Indication: TYPE 2 DIABETES MELLITUS
     Dosage: 24 U, PRN (20-24 UNITS, BID, ON A SLIDING SCALE)
     Route: 058
     Dates: start: 201909

REACTIONS (3)
  - Blood glucose increased [Recovered/Resolved]
  - Visual impairment [Unknown]
  - Product storage error [Recovered/Resolved]
